FAERS Safety Report 24727080 (Version 4)
Quarter: 2025Q2

REPORT INFORMATION
  Report Type: Spontaneous
  Country: DE (occurrence: DE)
  Receive Date: 20241212
  Receipt Date: 20250402
  Transmission Date: 20250717
  Serious: No
  Sender: PFIZER
  Company Number: DE-PFIZER INC-202400318736

PATIENT

DRUGS (1)
  1. DALTEPARIN SODIUM [Suspect]
     Active Substance: DALTEPARIN SODIUM

REACTIONS (2)
  - Device delivery system issue [Unknown]
  - Device material issue [Unknown]
